FAERS Safety Report 5016892-1 (Version None)
Quarter: 2006Q2

REPORT INFORMATION
  Report Type: 
  Country: None (occurrence: None)
  Receive Date: 20060525
  Receipt Date: 20060516
  Transmission Date: 20061013
  Serious: Yes (Hospitalization)
  Sender: FDA-Public Use
  Company Number: LTI2006A00120

PATIENT
  Age: 60 Year
  Sex: Female

DRUGS (6)
  1. ACTOS [Suspect]
     Indication: DIABETES MELLITUS NON-INSULIN-DEPENDENT
     Dosage: 45 MG (15 MG, 3 IN 1 D) ORAL,DAYS
     Route: 048
     Dates: start: 20031210, end: 20050915
  2. LOGROTON (CHLORTALIDONE, METOPROLOL TARTRATE) [Concomitant]
  3. AMARYL [Concomitant]
  4. ATORVASTATIN CALCIUM [Concomitant]
  5. ZANIDIP (LERCANIDIPINE HYDROCHLORIDE) [Concomitant]
  6. POTASSIUM CHLORIDE [Concomitant]

REACTIONS (19)
  - BUNDLE BRANCH BLOCK LEFT [None]
  - C-REACTIVE PROTEIN INCREASED [None]
  - CARDIAC DISORDER [None]
  - CARDIAC FAILURE [None]
  - CARDIAC MURMUR [None]
  - CONGESTIVE CARDIOMYOPATHY [None]
  - CORONARY ARTERY DISEASE [None]
  - DILATATION ATRIAL [None]
  - DYSPNOEA [None]
  - MITRAL VALVE INCOMPETENCE [None]
  - OEDEMA [None]
  - OEDEMA PERIPHERAL [None]
  - PULMONARY HYPERTENSION [None]
  - SEPTIC SHOCK [None]
  - SIGMOIDITIS [None]
  - SUPRAVENTRICULAR EXTRASYSTOLES [None]
  - VENTRICULAR DYSFUNCTION [None]
  - VENTRICULAR EXTRASYSTOLES [None]
  - VENTRICULAR TACHYCARDIA [None]
